FAERS Safety Report 4322243-8 (Version None)
Quarter: 2004Q1

REPORT INFORMATION
  Report Type: 
  Country: None (occurrence: None)
  Receive Date: 20040323
  Receipt Date: 20040211
  Transmission Date: 20041129
  Serious: Yes (Death)
  Sender: FDA-Public Use
  Company Number: 2004S1000488

PATIENT
  Age: 42 Year
  Sex: Female

DRUGS (13)
  1. CLOZAPINE [Suspect]
     Indication: SCHIZOAFFECTIVE DISORDER
     Dosage: 900 MG QD, ORAL
     Route: 048
  2. VENLAFAXINE [Concomitant]
  3. RISPERIDONE [Concomitant]
  4. CITALOPRAM [Concomitant]
  5. FUROSEMIDE [Concomitant]
  6. WARFARIN SODIUM [Concomitant]
  7. OMEPRAZOLE [Concomitant]
  8. POTASSIUM [Concomitant]
  9. ALBUTEROL [Concomitant]
  10. TOPIRMATE [Concomitant]
  11. EXTENDED PHENOYTOIN [Concomitant]
  12. LAMOTRIGINE [Concomitant]
  13. OXYBUTYNIN TRIAMCINOLONE INHALER (ALL FOR MANY YEARS) [Concomitant]

REACTIONS (2)
  - ARRHYTHMIA [None]
  - WEIGHT INCREASED [None]
